FAERS Safety Report 6828891-5 (Version None)
Quarter: 2010Q3

REPORT INFORMATION
  Report Type: 
  Country: None (occurrence: None)
  Receive Date: 20100709
  Receipt Date: 20070223
  Transmission Date: 20110219
  Serious: No
  Sender: FDA-Public Use
  Company Number: US-PFIZER INC-2007015627

PATIENT
  Sex: Female
  Weight: 88.9 kg

DRUGS (10)
  1. CHANTIX [Suspect]
     Indication: SMOKING CESSATION THERAPY
     Dates: start: 20070108
  2. NORVASC [Concomitant]
  3. PRILOSEC [Concomitant]
  4. CYMBALTA [Concomitant]
  5. CENTRUM [Concomitant]
  6. ALBUTEROL [Concomitant]
     Route: 055
  7. SPIRIVA [Concomitant]
  8. ADVAIR DISKUS 100/50 [Concomitant]
  9. OTHER RESPIRATORY SYSTEM PRODUCTS [Concomitant]
  10. ALL OTHER THERAPEUTIC PRODUCTS [Concomitant]

REACTIONS (1)
  - NAUSEA [None]
